FAERS Safety Report 25527135 (Version 1)
Quarter: 2025Q3

REPORT INFORMATION
  Report Type: Spontaneous
  Country: EU (occurrence: EU)
  Receive Date: 20250708
  Receipt Date: 20250708
  Transmission Date: 20251021
  Serious: Yes (Other)
  Sender: EMD SERONO INC
  Company Number: EU-Merck Healthcare KGaA-2025033459

PATIENT
  Age: 45 Year
  Sex: Male

DRUGS (1)
  1. LEVOTHYROXINE [Suspect]
     Active Substance: LEVOTHYROXINE
     Indication: Hypothyroidism

REACTIONS (9)
  - Amyotrophy [Unknown]
  - Memory impairment [Recovered/Resolved]
  - Fatigue [Unknown]
  - Cortisol increased [Unknown]
  - Swelling [Unknown]
  - Blood calcium abnormal [Unknown]
  - Muscular weakness [Unknown]
  - Tachycardia [Unknown]
  - Accidental overdose [Unknown]
